FAERS Safety Report 5151724-2 (Version None)
Quarter: 2006Q4

REPORT INFORMATION
  Report Type: 
  Country: None (occurrence: None)
  Receive Date: 20061107
  Receipt Date: 20061024
  Transmission Date: 20070319
  Serious: Yes (Hospitalization)
  Sender: FDA-Public Use
  Company Number: THYM-11147

PATIENT
  Age: 19 Year
  Sex: Male
  Weight: 100 kg

DRUGS (7)
  1. THYMOGLOBULIN [Suspect]
     Indication: KIDNEY TRANSPLANT REJECTION
     Dates: start: 20060922, end: 20060929
  2. RAPAMYCIN [Concomitant]
  3. CELLCEPT [Concomitant]
  4. PREDNISONE TAB [Concomitant]
  5. MEPRON [Concomitant]
  6. NORVASC [Concomitant]
  7. TOPROL-XL [Concomitant]

REACTIONS (2)
  - BLOOD CREATININE INCREASED [None]
  - SERUM SICKNESS [None]
